FAERS Safety Report 17147574 (Version 5)
Quarter: 2020Q1

REPORT INFORMATION
  Report Type: Spontaneous
  Country: US (occurrence: US)
  Receive Date: 20191212
  Receipt Date: 20200131
  Transmission Date: 20200409
  Serious: Yes (Hospitalization, Other)
  Sender: FDA-Public Use
  Company Number: US-CATALYST PHARMACEUTICALS, INC-2019CAT00660

PATIENT
  Age: 68 Year
  Sex: Female
  Weight: 95.24 kg

DRUGS (12)
  1. LANSOPRAZOLE. [Concomitant]
     Active Substance: LANSOPRAZOLE
  2. VITAMIN D [Concomitant]
     Active Substance: VITAMIN D NOS
  3. PROZAC [Concomitant]
     Active Substance: FLUOXETINE HYDROCHLORIDE
  4. FIRDAPSE [Suspect]
     Active Substance: AMIFAMPRIDINE
     Dosage: 10 MG, 3X/DAY
     Route: 048
     Dates: start: 2019, end: 2019
  5. FIRDAPSE [Suspect]
     Active Substance: AMIFAMPRIDINE
     Dosage: 10 MG, 1X/DAY
     Route: 048
     Dates: start: 2019
  6. CORTISONE [Suspect]
     Active Substance: CORTISONE
  7. IRON [Concomitant]
     Active Substance: IRON
  8. FIRDAPSE [Suspect]
     Active Substance: AMIFAMPRIDINE
     Indication: MYASTHENIC SYNDROME
     Dosage: 20 MG, 3X/DAY
     Route: 048
     Dates: start: 2019, end: 2019
  9. PREDNISONE. [Suspect]
     Active Substance: PREDNISONE
     Dosage: 10 MG, 1X/DAY
     Dates: end: 2019
  10. PREDNISONE. [Suspect]
     Active Substance: PREDNISONE
     Dosage: UNKNOWN INCREASED DOSE
     Dates: start: 2019, end: 2019
  11. PREDNISONE. [Suspect]
     Active Substance: PREDNISONE
     Dosage: 10 MG, 1X/DAY
     Dates: start: 2019
  12. CALCIUM [Concomitant]
     Active Substance: CALCIUM

REACTIONS (20)
  - Osteomyelitis [Recovering/Resolving]
  - Phlebolith [Unknown]
  - Malnutrition [Unknown]
  - Atelectasis [Unknown]
  - Septic shock [Recovering/Resolving]
  - Colitis [Unknown]
  - Diverticulum intestinal [Unknown]
  - Normocytic anaemia [Recovering/Resolving]
  - Escherichia bacteraemia [Recovering/Resolving]
  - Diverticulitis [Unknown]
  - Rash [Not Recovered/Not Resolved]
  - Escherichia infection [Recovering/Resolving]
  - Pneumonia [Recovering/Resolving]
  - Spinal stenosis [Unknown]
  - Bronchitis [Unknown]
  - Urinary retention [Not Recovered/Not Resolved]
  - Joint effusion [Unknown]
  - Acute sinusitis [Unknown]
  - Arteriosclerosis [Not Recovered/Not Resolved]
  - Fall [Unknown]

NARRATIVE: CASE EVENT DATE: 2011
